FAERS Safety Report 16261291 (Version 1)
Quarter: 2019Q2

REPORT INFORMATION
  Report Type: Spontaneous
  Country: FI (occurrence: FI)
  Receive Date: 20190501
  Receipt Date: 20190501
  Transmission Date: 20190711
  Serious: Yes (Other)
  Sender: FDA-Public Use
  Company Number: FI-PFIZER INC-2019184825

PATIENT
  Age: 67 Year
  Sex: Female

DRUGS (14)
  1. ZOLT [Concomitant]
  2. AVAMYS [Concomitant]
     Active Substance: FLUTICASONE FUROATE
  3. BISOPROLOL [Concomitant]
     Active Substance: BISOPROLOL
  4. THYROXIN [Concomitant]
     Active Substance: LEVOTHYROXINE
  5. OCULAC [Concomitant]
  6. PARA-TABS [Concomitant]
     Active Substance: ACETAMINOPHEN
  7. AIROMIR [Concomitant]
     Active Substance: ALBUTEROL SULFATE
  8. PREDNISOLON [Concomitant]
     Active Substance: PREDNISOLONE
  9. ZANIDIP [Concomitant]
     Active Substance: LERCANIDIPINE HYDROCHLORIDE
  10. METFOREM [Concomitant]
     Active Substance: METFORMIN HYDROCHLORIDE
  11. CALCICHEW [Concomitant]
     Active Substance: CALCIUM CARBONATE
  12. MONTELUKAST [Concomitant]
     Active Substance: MONTELUKAST SODIUM
  13. XELJANZ [Suspect]
     Active Substance: TOFACITINIB CITRATE
     Indication: RHEUMATOID ARTHRITIS
     Dosage: UNK
     Dates: start: 20180712, end: 20190421
  14. ALVESCO [Concomitant]
     Active Substance: CICLESONIDE

REACTIONS (1)
  - Breast cancer [Unknown]
